FAERS Safety Report 10024992 (Version 2)
Quarter: 2014Q1

REPORT INFORMATION
  Report Type: Report from Study
  Country: CA (occurrence: CA)
  Receive Date: 20140320
  Receipt Date: 20140320
  Transmission Date: 20141002
  Serious: Yes (Hospitalization)
  Sender: FDA-Public Use
  Company Number: CA-ABBVIE-09P-028-0502523-00

PATIENT
  Age: 31 Year
  Sex: Female

DRUGS (14)
  1. HUMIRA [Suspect]
     Indication: CROHN^S DISEASE
     Route: 058
     Dates: start: 20080220
  2. HYDROCHLOROTHIAZIDE [Concomitant]
     Indication: HYPERTENSION
     Dates: start: 200605
  3. DIANE [Concomitant]
     Indication: POLYCYSTIC OVARIES
     Dates: start: 2004
  4. METHOTREXATE [Concomitant]
     Indication: CROHN^S DISEASE
     Dates: start: 200708
  5. PENTASA [Concomitant]
     Indication: CROHN^S DISEASE
     Dates: start: 1998
  6. FERROUS SULFATE [Concomitant]
     Indication: MINERAL SUPPLEMENTATION
     Dates: start: 200607
  7. FOLIC ACID [Concomitant]
     Indication: VITAMIN SUPPLEMENTATION
     Dates: start: 200607
  8. ATENOLOL [Concomitant]
     Indication: MIGRAINE PROPHYLAXIS
     Dates: start: 20080125
  9. PREDNISONE [Concomitant]
     Indication: ABDOMINAL PAIN
     Dates: start: 20080218, end: 20080225
  10. AMOXIN [Concomitant]
     Indication: PHARYNGITIS STREPTOCOCCAL
     Dates: start: 20081003, end: 20081010
  11. PEN V [Concomitant]
     Indication: PHARYNGITIS STREPTOCOCCAL
     Dates: start: 20081011, end: 20081020
  12. INFLUENZA VACCINE [Concomitant]
     Indication: ANTIVIRAL PROPHYLAXIS
     Dosage: 1 INJECTION
     Dates: start: 20081025, end: 20081025
  13. AMOXIL [Concomitant]
     Indication: OTITIS MEDIA
     Dates: start: 20081212, end: 20081222
  14. BIAXIN [Concomitant]
     Indication: OTITIS MEDIA
     Dates: start: 20081223, end: 20081231

REACTIONS (1)
  - Intestinal obstruction [Recovered/Resolved]
